FAERS Safety Report 6138569-1 (Version None)
Quarter: 2009Q1

REPORT INFORMATION
  Report Type: 
  Country: None (occurrence: None)
  Receive Date: 20090326
  Receipt Date: 20090311
  Transmission Date: 20090719
  Serious: Yes (Other)
  Sender: FDA-Public Use
  Company Number: 1000005393

PATIENT
  Age: 69 Year
  Sex: Female

DRUGS (5)
  1. MEMANTINE HCL [Suspect]
     Indication: DEMENTIA ALZHEIMER'S TYPE
     Dosage: 5 MG (5 MG)
  2. CITALOPRAM [Concomitant]
  3. DONEPEZIL HCL [Concomitant]
  4. QUETIAPINE [Concomitant]
  5. TOCOPHEROL CONCENTRATE CAP [Concomitant]

REACTIONS (3)
  - AGITATION [None]
  - BRADYKINESIA [None]
  - HALLUCINATION, VISUAL [None]
